FAERS Safety Report 24854515 (Version 1)
Quarter: 2025Q1

REPORT INFORMATION
  Report Type: Report from Study
  Country: BR (occurrence: BR)
  Receive Date: 20250117
  Receipt Date: 20250117
  Transmission Date: 20250408
  Serious: Yes (Hospitalization)
  Sender: BIOGEN
  Company Number: BR-BIOGEN-2022BI01112896

PATIENT
  Sex: Male
  Weight: 114 kg

DRUGS (10)
  1. TYSABRI [Suspect]
     Active Substance: NATALIZUMAB
     Indication: Multiple sclerosis
     Route: 050
     Dates: start: 20220218, end: 2023
  2. TYSABRI [Suspect]
     Active Substance: NATALIZUMAB
     Route: 050
     Dates: start: 20220218, end: 2023
  3. TYSABRI [Suspect]
     Active Substance: NATALIZUMAB
     Route: 050
     Dates: start: 2023
  4. ENALAPRIL [Concomitant]
     Active Substance: ENALAPRIL
     Indication: Hypertension
     Route: 050
  5. ENALAPRIL [Concomitant]
     Active Substance: ENALAPRIL
     Route: 050
  6. PIPOTIAZINE [Concomitant]
     Active Substance: PIPOTIAZINE
     Indication: Product used for unknown indication
     Route: 050
  7. GABAPENTIN [Concomitant]
     Active Substance: GABAPENTIN
     Indication: Neuralgia
     Route: 050
  8. AMITRIPTYLINE [Concomitant]
     Active Substance: AMITRIPTYLINE
     Indication: Depression
     Route: 050
  9. SIMVASTATIN [Concomitant]
     Active Substance: SIMVASTATIN
     Indication: Low density lipoprotein increased
     Route: 050
  10. SUPRA D [Concomitant]
     Indication: Vitamin D deficiency
     Route: 050

REACTIONS (13)
  - Limb deformity [Recovered/Resolved]
  - Ulcer [Not Recovered/Not Resolved]
  - Gastritis [Unknown]
  - Multiple sclerosis relapse [Not Recovered/Not Resolved]
  - Coordination abnormal [Unknown]
  - Muscular weakness [Not Recovered/Not Resolved]
  - Gait disturbance [Unknown]
  - Hypoaesthesia [Not Recovered/Not Resolved]
  - Musculoskeletal stiffness [Not Recovered/Not Resolved]
  - Musculoskeletal disorder [Unknown]
  - Mobility decreased [Unknown]
  - Fall [Recovered/Resolved]
  - Spinal disorder [Unknown]
